FAERS Safety Report 7730591-4 (Version None)
Quarter: 2011Q3

REPORT INFORMATION
  Report Type: 
  Country: None (occurrence: None)
  Receive Date: 20110906
  Receipt Date: 20110823
  Transmission Date: 20111222
  Serious: Yes (Other)
  Sender: FDA-Public Use
  Company Number: JP-JNJFOC-20110900925

PATIENT
  Sex: Male

DRUGS (5)
  1. CONCERTA [Suspect]
     Indication: ATTENTION DEFICIT/HYPERACTIVITY DISORDER
     Route: 048
     Dates: start: 20091017, end: 20100118
  2. CONCERTA [Suspect]
     Route: 048
     Dates: start: 20100119, end: 20100717
  3. CONCERTA [Suspect]
     Route: 048
     Dates: start: 20110122
  4. CONCERTA [Suspect]
     Route: 048
     Dates: start: 20100718, end: 20110121
  5. CONCERTA [Suspect]
     Route: 048
     Dates: start: 20090717, end: 20091017

REACTIONS (1)
  - OBSESSIVE-COMPULSIVE DISORDER [None]
